FAERS Safety Report 7541495-4 (Version None)
Quarter: 2011Q2

REPORT INFORMATION
  Report Type: 
  Country: None (occurrence: None)
  Receive Date: 20110613
  Receipt Date: 20100219
  Transmission Date: 20111010
  Serious: No
  Sender: FDA-Public Use
  Company Number: 2010BI006034

PATIENT
  Sex: Female

DRUGS (3)
  1. TYSABRI [Suspect]
     Route: 042
     Dates: start: 20070622
  2. TYSABRI [Suspect]
     Indication: MULTIPLE SCLEROSIS
     Route: 042
     Dates: start: 20050203, end: 20050203
  3. FLU SHOT [Concomitant]

REACTIONS (10)
  - MENISCUS LESION [None]
  - MULTIPLE SCLEROSIS RELAPSE [None]
  - POLYARTHRITIS [None]
  - VULVOVAGINAL BURNING SENSATION [None]
  - PAIN IN EXTREMITY [None]
  - BLOOD PRESSURE INCREASED [None]
  - MUSCULAR WEAKNESS [None]
  - FATIGUE [None]
  - POOR QUALITY SLEEP [None]
  - STRESS [None]
